FAERS Safety Report 6551494-7 (Version None)
Quarter: 2010Q1

REPORT INFORMATION
  Report Type: 
  Country: None (occurrence: None)
  Receive Date: 20100122
  Receipt Date: 20091013
  Transmission Date: 20100710
  Serious: Yes (Hospitalization)
  Sender: FDA-Public Use
  Company Number: WAES 0910USA01567

PATIENT
  Age: 48 Year
  Sex: Female

DRUGS (5)
  1. INVANZ [Suspect]
     Indication: LIVER ABSCESS
     Dosage: 1 GM/DAILY/IV
     Route: 042
     Dates: start: 20091008, end: 20091012
  2. PRILOSEC [Concomitant]
  3. HYDROXYZINE [Concomitant]
  4. LORAZEPAM [Concomitant]
  5. OXYCODONE HCL [Concomitant]

REACTIONS (1)
  - URTICARIA [None]
